FAERS Safety Report 24221509 (Version 2)
Quarter: 2024Q3

REPORT INFORMATION
  Report Type: Report from Study
  Country: US (occurrence: US)
  Receive Date: 20240819
  Receipt Date: 20240826
  Transmission Date: 20241017
  Serious: Yes (Other)
  Sender: AMGEN
  Company Number: US-AMGEN-USASP2024160089

PATIENT
  Age: 82 Year
  Sex: Male

DRUGS (6)
  1. TAVNEOS [Suspect]
     Active Substance: AVACOPAN
     Indication: Vasculitis
     Dosage: 30 MILLIGRAM, BID ( 3 PILLS WITH FOOD TWICE A DAY- 10 MG ^SO 30 MG TWICE A DAY)
     Route: 048
     Dates: start: 20240802, end: 20240812
  2. TAVNEOS [Suspect]
     Active Substance: AVACOPAN
     Indication: Granulomatosis with polyangiitis
  3. PREDNISONE [Suspect]
     Active Substance: PREDNISONE
     Indication: Vasculitis
     Dosage: 10 MILLIGRAM, QD
     Route: 065
     Dates: start: 202207
  4. PREDNISONE [Suspect]
     Active Substance: PREDNISONE
     Indication: Granulomatosis with polyangiitis
  5. RITUXAN [Concomitant]
     Active Substance: RITUXIMAB
     Dosage: UNK UNK, Q6MO ((500 MG TWICE A YEAR)
     Route: 042
     Dates: start: 202208
  6. RYTARY [Concomitant]
     Active Substance: CARBIDOPA\LEVODOPA
     Indication: Parkinson^s disease
     Dosage: UNK UNK, TID (195 MG AND 145 MG- ^SLOW RELEASE ONE OF EACH)
     Route: 065
     Dates: start: 202206

REACTIONS (16)
  - Atrial fibrillation [Unknown]
  - Neuropathy peripheral [Unknown]
  - Squamous cell carcinoma [Unknown]
  - Prostate cancer [Unknown]
  - Hallucination [Unknown]
  - Diarrhoea [Recovered/Resolved]
  - Pollakiuria [Recovered/Resolved]
  - Lung disorder [Unknown]
  - Frequent bowel movements [Recovered/Resolved]
  - Illness [Unknown]
  - Somnolence [Unknown]
  - Gait disturbance [Recovering/Resolving]
  - Nausea [Recovered/Resolved]
  - Abdominal pain upper [Recovered/Resolved]
  - Dizziness [Recovered/Resolved]
  - Fatigue [Recovered/Resolved]

NARRATIVE: CASE EVENT DATE: 20240101
